FAERS Safety Report 11092446 (Version 1)
Quarter: 2015Q2

REPORT INFORMATION
  Report Type: Spontaneous
  Country: US (occurrence: None)
  Receive Date: 20150505
  Receipt Date: 20150505
  Transmission Date: 20150821
  Serious: Yes (Other)
  Sender: FDA-Public Use
  Company Number: None

PATIENT
  Age: 81 Year
  Sex: Female
  Weight: 63.5 kg

DRUGS (1)
  1. DOIZOLAMIDE HCL /TIMOLOL MALEATE OPTHALMIC SOLUTION BOUSCH + LOMB INC. [Suspect]
     Active Substance: DORZOLAMIDE HYDROCHLORIDE\TIMOLOL MALEATE
     Indication: OPEN ANGLE GLAUCOMA
     Dosage: 22.3 MG/68 MG PER ML 1 DROP BOTH EYES TWICE DAILY MORNING EVENING EYE DROP
     Dates: start: 20150311, end: 20150408

REACTIONS (8)
  - Headache [None]
  - Cough [None]
  - Vision blurred [None]
  - Muscular weakness [None]
  - Nausea [None]
  - Eye pain [None]
  - Gait disturbance [None]
  - Gastrooesophageal reflux disease [None]

NARRATIVE: CASE EVENT DATE: 20150311
